FAERS Safety Report 24928529 (Version 1)
Quarter: 2025Q1

REPORT INFORMATION
  Report Type: Spontaneous
  Country: US (occurrence: None)
  Receive Date: 20250204
  Receipt Date: 20250204
  Transmission Date: 20250409
  Serious: Yes (Other)
  Sender: FDA-CTU
  Company Number: None

PATIENT
  Age: 7 Year
  Sex: Male
  Weight: 34.6 kg

DRUGS (1)
  1. ALPRAZOLAM [Suspect]
     Active Substance: ALPRAZOLAM
     Dosage: FREQUENCY : TWICE A DAY;?
     Route: 048
     Dates: start: 20250203, end: 20250204

REACTIONS (3)
  - Seizure [None]
  - Wrong patient received product [None]
  - Wrong product administered [None]

NARRATIVE: CASE EVENT DATE: 20250204
